FAERS Safety Report 9030854 (Version 1)
Quarter: 2013Q1

REPORT INFORMATION
  Report Type: Spontaneous
  Country: CA (occurrence: CA)
  Receive Date: 20130123
  Receipt Date: 20130123
  Transmission Date: 20140127
  Serious: Yes (Other)
  Sender: FDA-Public Use
  Company Number: CA-JNJFOC-20130110370

PATIENT
  Age: 73 Year
  Sex: Female
  Weight: 77.11 kg

DRUGS (3)
  1. NICODERM CQ [Suspect]
     Route: 061
  2. NICODERM CQ [Suspect]
     Indication: SMOKING CESSATION THERAPY
     Route: 061
     Dates: start: 20130114
  3. UNSPECIFIED SLEEPING AGENTS [Concomitant]
     Route: 065

REACTIONS (3)
  - Depression [Unknown]
  - Insomnia [Not Recovered/Not Resolved]
  - Application site irritation [Recovered/Resolved]
